FAERS Safety Report 23295786 (Version 1)
Quarter: 2023Q4

REPORT INFORMATION
  Report Type: Spontaneous
  Country: US (occurrence: US)
  Receive Date: 20231214
  Receipt Date: 20231214
  Transmission Date: 20240109
  Serious: Yes (Hospitalization, Other)
  Sender: FDA-Public Use
  Company Number: US-JUBILANT CADISTA PHARMACEUTICALS-2023US001597

PATIENT
  Age: 63 Year
  Sex: Male
  Weight: 102.5 kg

DRUGS (22)
  1. BUPROPION HYDROCHLORIDE [Suspect]
     Active Substance: BUPROPION HYDROCHLORIDE
     Indication: Major depression
     Dosage: 150 MG, ONCE PER DAY
     Route: 048
  2. BUPROPION HYDROCHLORIDE [Suspect]
     Active Substance: BUPROPION HYDROCHLORIDE
     Indication: Anxiety disorder
     Dosage: 150 MG, ONCE PER DAY
     Route: 048
  3. BUSPIRONE [Suspect]
     Active Substance: BUSPIRONE HYDROCHLORIDE
     Indication: Major depression
     Dosage: 30 MG, 2 TIMES PER DAY
     Route: 048
  4. BUSPIRONE [Suspect]
     Active Substance: BUSPIRONE HYDROCHLORIDE
     Indication: Anxiety disorder
  5. DESVENLAFAXINE [Suspect]
     Active Substance: DESVENLAFAXINE
     Indication: Anxiety disorder
     Dosage: 100 MG, ONCE PER DAY
     Route: 048
  6. DESVENLAFAXINE [Suspect]
     Active Substance: DESVENLAFAXINE
     Indication: Major depression
  7. TRAZODONE [Suspect]
     Active Substance: TRAZODONE HYDROCHLORIDE
     Indication: Anxiety disorder
     Dosage: 50-150 MG EVERY NIGHT AT BEDTIME
     Route: 048
  8. TRAZODONE [Suspect]
     Active Substance: TRAZODONE HYDROCHLORIDE
     Indication: Major depression
  9. ZIPRASIDONE [Suspect]
     Active Substance: ZIPRASIDONE
     Indication: Anxiety disorder
     Dosage: 40 MG, 2 TIMES PER DAY
     Route: 048
  10. ZIPRASIDONE [Suspect]
     Active Substance: ZIPRASIDONE
     Indication: Major depression
  11. HERBALS\MITRAGYNINE [Suspect]
     Active Substance: HERBALS\MITRAGYNINE
     Indication: Phytotherapy
     Dosage: UNK, 3 TIMES PER DAY
     Route: 048
  12. DICLOFENAC [Concomitant]
     Active Substance: DICLOFENAC
     Indication: Product used for unknown indication
     Dosage: 75 MG, 2 TIMES PER DAY
     Route: 048
  13. TIZANIDINE [Concomitant]
     Active Substance: TIZANIDINE
     Indication: Product used for unknown indication
     Dosage: 6 MG, EVERY 8 HOURS (WHEN REUIRED)
     Route: 048
  14. GABAPENTIN [Concomitant]
     Active Substance: GABAPENTIN
     Indication: Product used for unknown indication
     Dosage: 800 MG, ONCE PER DAY (AT BEDTIME)
     Route: 048
  15. GLIMEPIRIDE [Concomitant]
     Active Substance: GLIMEPIRIDE
     Indication: Product used for unknown indication
     Dosage: 4 MG, ONCE PER DAY
     Route: 048
  16. METFORMIN [Concomitant]
     Active Substance: METFORMIN HYDROCHLORIDE
     Indication: Product used for unknown indication
     Dosage: 500 MG, ONCE PER DAY (AT BEDTIME)
     Route: 065
  17. OMEPRAZOLE [Concomitant]
     Active Substance: OMEPRAZOLE
     Indication: Product used for unknown indication
     Dosage: 40 MG, ONCE PER DAY
     Route: 048
  18. HYDROCHLOROTHIAZIDE [Concomitant]
     Active Substance: HYDROCHLOROTHIAZIDE
     Indication: Product used for unknown indication
     Dosage: 25 MG, ONCE PER DAY
     Route: 048
  19. AMLODIPINE [Concomitant]
     Active Substance: AMLODIPINE BESYLATE
     Indication: Product used for unknown indication
     Dosage: 5 MG, ONCE PER DAY
     Route: 048
  20. VANCOMYCIN [Concomitant]
     Active Substance: VANCOMYCIN
     Indication: Antibiotic therapy
     Dosage: 1750 MG, ONCE PER DAY
     Route: 042
  21. PIPERACILLIN SODIUM\TAZOBACTAM SODIUM [Concomitant]
     Active Substance: PIPERACILLIN SODIUM\TAZOBACTAM SODIUM
     Indication: Antibiotic therapy
     Dosage: 3.375 MG, EVERY 8 HOUR
     Route: 042
  22. ACETAMINOPHEN [Concomitant]
     Active Substance: ACETAMINOPHEN
     Indication: Product used for unknown indication

REACTIONS (12)
  - Serotonin syndrome [Recovered/Resolved]
  - Flushing [Recovered/Resolved]
  - Tremor [Recovered/Resolved]
  - Pyrexia [Recovered/Resolved]
  - Delirium [Recovered/Resolved]
  - Hyperreflexia [Recovered/Resolved]
  - Clonus [Recovered/Resolved]
  - Aphasia [Recovered/Resolved]
  - Confusional state [Recovered/Resolved]
  - Dysarthria [Recovered/Resolved]
  - Facial paralysis [Recovered/Resolved]
  - Drug interaction [Unknown]
